FAERS Safety Report 6670838-9 (Version None)
Quarter: 2010Q2

REPORT INFORMATION
  Report Type: 
  Country: None (occurrence: None)
  Receive Date: 20100407
  Receipt Date: 20100331
  Transmission Date: 20101027
  Serious: Yes (Other)
  Sender: FDA-Public Use
  Company Number: IT-BAYER-201019099GPV

PATIENT
  Age: 79 Year
  Sex: Male

DRUGS (9)
  1. CIPROXIN [Suspect]
     Indication: BRONCHOPNEUMOPATHY
     Route: 048
     Dates: start: 20100226, end: 20100304
  2. ZOLPIDEM [Suspect]
     Indication: INSOMNIA
     Route: 048
     Dates: start: 20100301, end: 20100301
  3. SPIRIVA [Concomitant]
     Route: 065
  4. ASPIRIN [Concomitant]
     Route: 048
  5. LANOXIN [Concomitant]
     Route: 065
  6. ALDACTONE [Concomitant]
     Route: 048
  7. LASIX [Concomitant]
     Route: 048
  8. SOLMUCOL [Concomitant]
     Route: 048
  9. ALIFLUS DISKUS [Concomitant]
     Route: 055

REACTIONS (2)
  - AGGRESSION [None]
  - DELIRIUM [None]
